FAERS Safety Report 18494647 (Version 1)
Quarter: 2020Q4

REPORT INFORMATION
  Report Type: Spontaneous
  Country: RO (occurrence: RO)
  Receive Date: 20201112
  Receipt Date: 20201112
  Transmission Date: 20210114
  Serious: Yes (Death, Other)
  Sender: FDA-Public Use
  Company Number: RO-009507513-2011ROM005135

PATIENT
  Age: 34 Year
  Sex: Male

DRUGS (1)
  1. KEYTRUDA [Suspect]
     Active Substance: PEMBROLIZUMAB
     Dosage: UNKNOWN
     Dates: start: 2019

REACTIONS (2)
  - Death [Fatal]
  - Immune-mediated hepatitis [Unknown]

NARRATIVE: CASE EVENT DATE: 2020
